FAERS Safety Report 8362499-8 (Version None)
Quarter: 2012Q2

REPORT INFORMATION
  Report Type: 
  Country: None (occurrence: None)
  Receive Date: 20120514
  Receipt Date: 20120502
  Transmission Date: 20120825
  Serious: Yes (Other)
  Sender: FDA-Public Use
  Company Number: 2011MA002782

PATIENT
  Sex: Female

DRUGS (10)
  1. FERROUS SULFATE TAB [Concomitant]
  2. NITROGLYCERINH [Concomitant]
  3. ZOCOR [Concomitant]
  4. LEVOTHYROXINE SODIUM [Concomitant]
  5. METFORMIN HCL [Concomitant]
  6. METOCLOPRAMIDE [Suspect]
     Indication: GASTROINTESTINAL MOTILITY DISORDER
     Dosage: UNK
     Dates: end: 20090701
  7. METOCLOPRAMIDE [Suspect]
     Indication: GASTROOESOPHAGEAL REFLUX DISEASE
     Dosage: UNK
     Dates: end: 20090701
  8. ENALAPRIL MALEATE [Concomitant]
  9. QVAR 40 [Concomitant]
  10. ACIPHEX [Concomitant]

REACTIONS (5)
  - GALLBLADDER ENLARGEMENT [None]
  - TARDIVE DYSKINESIA [None]
  - ECONOMIC PROBLEM [None]
  - EMOTIONAL DISORDER [None]
  - MESENTERIC OCCLUSION [None]
